FAERS Safety Report 20131116 (Version 1)
Quarter: 2021Q4

REPORT INFORMATION
  Report Type: Report from Study
  Country: GT (occurrence: None)
  Receive Date: 20211130
  Receipt Date: 20211130
  Transmission Date: 20220304
  Serious: Yes (Death, Hospitalization)
  Sender: FDA-Public Use
  Company Number: GT-Merck Healthcare KGaA-9282284

PATIENT
  Age: 51 Year
  Sex: Female

DRUGS (1)
  1. REBIF [Suspect]
     Active Substance: INTERFERON BETA-1A
     Indication: Multiple sclerosis
     Route: 058
     Dates: start: 20211022

REACTIONS (3)
  - Septic shock [Fatal]
  - Ulcer [Unknown]
  - Seizure [Unknown]

NARRATIVE: CASE EVENT DATE: 20211001
